FAERS Safety Report 19144965 (Version 1)
Quarter: 2021Q2

REPORT INFORMATION
  Report Type: Spontaneous
  Country: FR (occurrence: FR)
  Receive Date: 20210416
  Receipt Date: 20210416
  Transmission Date: 20210717
  Serious: Yes (Other)
  Sender: FDA-Public Use
  Company Number: FR-ROCHE-2810100

PATIENT
  Sex: Female

DRUGS (1)
  1. VALIUM [Suspect]
     Active Substance: DIAZEPAM
     Indication: ANXIETY
     Dosage: DOSE OF 2 DROPS IN THE MORNING AND 2 DROPS IN THE EVENING
     Route: 048

REACTIONS (4)
  - Paradoxical drug reaction [Unknown]
  - Disturbance in attention [Unknown]
  - Paralysis [Unknown]
  - Bruxism [Unknown]
